FAERS Safety Report 11220159 (Version 1)
Quarter: 2015Q2

REPORT INFORMATION
  Report Type: Spontaneous
  Country: US (occurrence: None)
  Receive Date: 20150624
  Receipt Date: 20150624
  Transmission Date: 20150821
  Serious: Yes (Disabling)
  Sender: FDA-Public Use
  Company Number: None

PATIENT
  Age: 63 Year
  Sex: Male
  Weight: 107.96 kg

DRUGS (8)
  1. WELCHOL [Concomitant]
     Active Substance: COLESEVELAM HYDROCHLORIDE
  2. MULTI VIT [Concomitant]
  3. PANTAPROZOLE [Concomitant]
     Active Substance: PANTOPRAZOLE SODIUM
  4. CRESTOR [Concomitant]
     Active Substance: ROSUVASTATIN CALCIUM
  5. GLIPINZLIDE [Concomitant]
  6. DIOVAN [Concomitant]
     Active Substance: VALSARTAN
  7. JANUVIA [Suspect]
     Active Substance: SITAGLIPTIN PHOSPHATE
     Indication: TYPE 2 DIABETES MELLITUS
     Dosage: 100 1 X DAY  ONCE DAILY TAKEN BY MOUTH
     Route: 048
  8. PLAVIX [Concomitant]
     Active Substance: CLOPIDOGREL BISULFATE

REACTIONS (5)
  - Headache [None]
  - Abdominal pain upper [None]
  - Fatigue [None]
  - Sinus congestion [None]
  - Respiratory tract congestion [None]

NARRATIVE: CASE EVENT DATE: 20150617
